FAERS Safety Report 17280903 (Version 3)
Quarter: 2020Q4

REPORT INFORMATION
  Report Type: Spontaneous
  Country: BE (occurrence: BE)
  Receive Date: 20200117
  Receipt Date: 20201028
  Transmission Date: 20210113
  Serious: Yes (Hospitalization, Other)
  Sender: FDA-Public Use
  Company Number: BE-ACCORD-169790

PATIENT
  Age: 48 Year
  Sex: Female

DRUGS (3)
  1. OXALIPLATIN. [Suspect]
     Active Substance: OXALIPLATIN
     Indication: COLON CANCER METASTATIC
     Dosage: RECEIVED 10 CYCLES
     Dates: start: 201802, end: 201808
  2. FLUOROURACIL. [Concomitant]
     Active Substance: FLUOROURACIL
     Indication: COLON CANCER METASTATIC
     Dosage: RECEIVED 10 CYCLES
     Dates: start: 201802, end: 201808
  3. FOLINIC ACID [Concomitant]
     Active Substance: LEUCOVORIN
     Indication: COLON CANCER METASTATIC
     Dosage: RECEIVED 10 CYCLES
     Dates: start: 201802, end: 201808

REACTIONS (2)
  - Guillain-Barre syndrome [Recovered/Resolved]
  - Campylobacter infection [Recovering/Resolving]

NARRATIVE: CASE EVENT DATE: 2018
